FAERS Safety Report 5706180-X (Version None)
Quarter: 2008Q2

REPORT INFORMATION
  Report Type: 
  Country: None (occurrence: None)
  Receive Date: 20080411
  Receipt Date: 20080402
  Transmission Date: 20081010
  Serious: Yes (Other)
  Sender: FDA-Public Use
  Company Number: CHNY2008JP01493

PATIENT
  Age: 80 Year
  Sex: Male

DRUGS (13)
  1. PURSENNID (NCH)(SENNA GLYCOSIDES (CA SALTS OF PURIFIED SENNA EXTRACT)) [Suspect]
     Dosage: ORAL
     Route: 048
  2. CASODEX [Concomitant]
  3. TAMSULOSIN HCL [Concomitant]
  4. NORVASC [Concomitant]
  5. NISOLDIPINE (NISOLDIPINE) [Concomitant]
  6. AZULENE (AZULENE) [Concomitant]
  7. GLUMIN (GLUTAMIC ACID) [Concomitant]
  8. DIASTASE (DIASTASE) [Concomitant]
  9. PANCREATIN TRIPLE STRENGTH CAP [Concomitant]
  10. MAGNESIUM OXIDE (MAGNESIUM OXIDE) [Concomitant]
  11. GASTROZEPIN [Concomitant]
  12. HALCION [Concomitant]
  13. NICARDIPINE HYDROCHLORIDE [Concomitant]

REACTIONS (1)
  - SYSTEMIC LUPUS ERYTHEMATOSUS [None]
